FAERS Safety Report 4625620-0 (Version None)
Quarter: 2005Q1

REPORT INFORMATION
  Report Type: 
  Country: None (occurrence: None)
  Receive Date: 20050331
  Receipt Date: 20050331
  Transmission Date: 20050727
  Serious: No
  Sender: FDA-Public Use
  Company Number: None

PATIENT
  Age: 16 Year
  Sex: Female
  Weight: 66.2252 kg

DRUGS (6)
  1. STRATTERA [Suspect]
     Indication: ATTENTION DEFICIT/HYPERACTIVITY DISORDER
     Dosage: 4 CAPSULES (40 MG) POQD
     Route: 048
     Dates: start: 20050127, end: 20050315
  2. STRATTERA [Suspect]
     Indication: DEPRESSION
     Dosage: 4 CAPSULES (40 MG) POQD
     Route: 048
     Dates: start: 20050127, end: 20050315
  3. STRATTERA [Suspect]
     Indication: OBSESSIVE-COMPULSIVE DISORDER
     Dosage: 4 CAPSULES (40 MG) POQD
     Route: 048
     Dates: start: 20050127, end: 20050315
  4. STRATTERA [Suspect]
     Indication: TIC
     Dosage: 4 CAPSULES (40 MG) POQD
     Route: 048
     Dates: start: 20050127, end: 20050315
  5. CLONIDINE [Concomitant]
  6. FLUVOXAMINE MALEATE [Concomitant]

REACTIONS (2)
  - JAUNDICE [None]
  - OCULAR ICTERUS [None]
